FAERS Safety Report 4983168-8 (Version None)
Quarter: 2006Q2

REPORT INFORMATION
  Report Type: 
  Country: None (occurrence: None)
  Receive Date: 20060426
  Receipt Date: 20050912
  Transmission Date: 20061013
  Serious: Yes (Other)
  Sender: FDA-Public Use
  Company Number: US-AVENTIS-200613638US

PATIENT
  Sex: Male

DRUGS (1)
  1. OPTICLIK (INSULIN INJECTION PEN) [Suspect]
     Dosage: DOSE: UNKNOWN

REACTIONS (2)
  - DEVICE MALFUNCTION [None]
  - NO ADVERSE EFFECT [None]
